FAERS Safety Report 6230321-1 (Version None)
Quarter: 2009Q2

REPORT INFORMATION
  Report Type: 
  Country: None (occurrence: None)
  Receive Date: 20090611
  Receipt Date: 20090601
  Transmission Date: 20091009
  Serious: Yes (Death)
  Sender: FDA-Public Use
  Company Number: JPI-P-007441

PATIENT
  Age: 46 Year
  Sex: Female

DRUGS (2)
  1. XYREM [Suspect]
     Indication: INSOMNIA
     Dosage: 1 GM (0.5 GM, 2 IN 1 D) ORAL, 2 GM, (1 GM, 2 IN 1 D)
     Route: 048
     Dates: start: 20090316
  2. XYREM [Suspect]
     Indication: INSOMNIA
     Dosage: 1 GM (0.5 GM, 2 IN 1 D) ORAL, 2 GM, (1 GM, 2 IN 1 D)
     Route: 048
     Dates: start: 20090429

REACTIONS (1)
  - DEATH [None]
